FAERS Safety Report 18664475 (Version 2)
Quarter: 2021Q2

REPORT INFORMATION
  Report Type: Spontaneous
  Country: US (occurrence: US)
  Receive Date: 20201225
  Receipt Date: 20210629
  Transmission Date: 20210717
  Serious: Yes (Other)
  Sender: FDA-Public Use
  Company Number: US-ASTRAZENECA-2020SF71080

PATIENT
  Age: 68 Year
  Sex: Male

DRUGS (11)
  1. AZITHROMYCIN ANHYDROUS. [Concomitant]
     Active Substance: AZITHROMYCIN ANHYDROUS
     Indication: ANTIBIOTIC LEVEL
     Route: 065
     Dates: start: 2016
  2. LIDODERM [Concomitant]
     Active Substance: LIDOCAINE
  3. TRAMADOL. [Concomitant]
     Active Substance: TRAMADOL
     Indication: PAIN
     Route: 065
     Dates: start: 2016
  4. TAMSULOSIN [Concomitant]
     Active Substance: TAMSULOSIN
  5. RAMIPRIL. [Concomitant]
     Active Substance: RAMIPRIL
     Indication: CARDIAC DISORDER
     Route: 065
     Dates: start: 2007
  6. PANTOPRAZOLE [Suspect]
     Active Substance: PANTOPRAZOLE
  7. CLINDAMYCIN. [Concomitant]
     Active Substance: CLINDAMYCIN
     Indication: ANTIBIOTIC LEVEL
     Route: 065
     Dates: start: 2008
  8. PREDNISONE. [Concomitant]
     Active Substance: PREDNISONE
  9. NEXIUM [Suspect]
     Active Substance: ESOMEPRAZOLE MAGNESIUM
     Indication: GASTROOESOPHAGEAL REFLUX DISEASE
     Route: 048
     Dates: start: 2008, end: 2017
  10. MEDROL [Concomitant]
     Active Substance: METHYLPREDNISOLONE
  11. FOLTX [Concomitant]
     Active Substance: CYANOCOBALAMIN CO-57\FOLIC ACID\PYRIDOXINE HYDROCHLORIDE

REACTIONS (1)
  - Chronic kidney disease [Not Recovered/Not Resolved]

NARRATIVE: CASE EVENT DATE: 2010
